FAERS Safety Report 23074993 (Version 1)
Quarter: 2023Q4

REPORT INFORMATION
  Report Type: Spontaneous
  Country: PL (occurrence: PL)
  Receive Date: 20231017
  Receipt Date: 20231017
  Transmission Date: 20240109
  Serious: Yes (Hospitalization)
  Sender: FDA-Public Use
  Company Number: None

PATIENT
  Age: 42 Year
  Sex: Female
  Weight: 43 kg

DRUGS (1)
  1. MYLOTARG [Suspect]
     Active Substance: GEMTUZUMAB OZOGAMICIN
     Indication: Acute myeloid leukaemia
     Dosage: FREQ:5 D;
     Route: 042
     Dates: start: 20230413, end: 20230418

REACTIONS (10)
  - Fluid retention [Recovering/Resolving]
  - Myelosuppression [Recovering/Resolving]
  - Skin swelling [Recovering/Resolving]
  - Venoocclusive liver disease [Recovering/Resolving]
  - Palmar erythema [Recovering/Resolving]
  - Systemic mycosis [Recovering/Resolving]
  - Febrile neutropenia [Recovering/Resolving]
  - Stomatitis [Recovering/Resolving]
  - Hepatic enzyme increased [Recovering/Resolving]
  - Vaginal haemorrhage [Recovering/Resolving]

NARRATIVE: CASE EVENT DATE: 20230419
